FAERS Safety Report 26109462 (Version 1)
Quarter: 2025Q4

REPORT INFORMATION
  Report Type: Spontaneous
  Country: US (occurrence: US)
  Receive Date: 20251201
  Receipt Date: 20251201
  Transmission Date: 20260117
  Serious: Yes (Other)
  Sender: MYLAN
  Company Number: US-MYLANLABS-2025M1100652

PATIENT
  Sex: Male

DRUGS (2)
  1. FENTANYL [Suspect]
     Active Substance: FENTANYL
     Indication: Product used for unknown indication
     Dosage: UNK
  2. CANNABIS SATIVA SUBSP. INDICA TOP [Concomitant]
     Active Substance: CANNABIS SATIVA SUBSP. INDICA TOP
     Dosage: UNK

REACTIONS (9)
  - Cardiac arrest [Unknown]
  - Pulse absent [Unknown]
  - Loss of consciousness [Unknown]
  - Respiration abnormal [Unknown]
  - Injury [Unknown]
  - Miosis [Unknown]
  - Overdose [Unknown]
  - Substance use [Unknown]
  - Drug diversion [Unknown]

NARRATIVE: CASE EVENT DATE: 20200303
